FAERS Safety Report 6550547-7 (Version None)
Quarter: 2010Q1

REPORT INFORMATION
  Report Type: 
  Country: None (occurrence: None)
  Receive Date: 20100125
  Receipt Date: 20091228
  Transmission Date: 20100710
  Serious: Yes (Other)
  Sender: FDA-Public Use
  Company Number: US-ABBOTT-10P-163-0617227-00

PATIENT
  Age: 71 Year
  Sex: Male
  Weight: 95.34 kg

DRUGS (6)
  1. TRIDIONE [Suspect]
     Indication: CONVULSION
     Dates: start: 19570101
  2. PHENOBARBITAL TAB [Concomitant]
     Indication: CONVULSION
  3. PROBENECID [Concomitant]
     Indication: ARTHRITIS
  4. MULTI-VITAMIN [Concomitant]
     Indication: VITAMIN SUPPLEMENTATION
  5. DILANTIN [Concomitant]
     Indication: CONVULSION
  6. MYSOLINE [Concomitant]
     Indication: CONVULSION

REACTIONS (3)
  - APHASIA [None]
  - CONVULSION [None]
  - GAIT DISTURBANCE [None]
